FAERS Safety Report 8763857 (Version 1)
Quarter: 2012Q4

REPORT INFORMATION
  Report Type: Report from Study
  Country: JP (occurrence: JP)
  Receive Date: 20120831
  Receipt Date: 20120831
  Transmission Date: 20130627
  Serious: Yes (Other)
  Sender: FDA-Public Use
  Company Number: JP-VERTEX PHARMACEUTICAL INC.-2012-020189

PATIENT
  Age: 66 Year
  Sex: Male

DRUGS (14)
  1. VX-950 [Suspect]
     Indication: HEPATITIS C
     Dosage: 2250 mg, UNK
     Route: 048
     Dates: start: 20120612, end: 20120819
  2. REBETOL [Concomitant]
     Indication: HEPATITIS C
     Dosage: 800 mg, UNK
     Route: 048
     Dates: start: 20120612, end: 20120703
  3. REBETOL [Concomitant]
     Dosage: 400 mg, UNK
     Route: 048
     Dates: start: 20120703, end: 20120717
  4. REBETOL [Concomitant]
     Dosage: 200 mg, UNK
     Route: 048
     Dates: start: 20120717, end: 20120819
  5. PEGINTERFERON ALFA-2B [Concomitant]
     Indication: HEPATITIS C
     Dosage: 1.5 UNK, UNK
     Route: 058
     Dates: start: 20120612, end: 20120821
  6. URSO                               /00465701/ [Concomitant]
     Dosage: 600 mg, qd
     Route: 048
  7. DEPAS [Concomitant]
     Dosage: 1 mg, qd
     Route: 048
  8. RIZE                               /00624801/ [Concomitant]
     Dosage: 15 mg, UNK
     Route: 048
  9. PARIET [Concomitant]
     Dosage: 10 mg, UNK
     Route: 048
  10. CALBLOCK [Concomitant]
     Dosage: 8 mg, UNK
     Route: 048
  11. MICARDIS [Concomitant]
     Dosage: 40 mg, UNK
     Route: 048
  12. HUMALOG BASAL [Concomitant]
     Dosage: 14 DF, qd
     Route: 058
  13. HUMALOG MIX [Concomitant]
     Dosage: 8 DF, qd
     Route: 058
  14. EKSALB                             /00028601/ [Concomitant]
     Dosage: 5 g, prn
     Route: 051
     Dates: start: 20120626

REACTIONS (1)
  - Drug eruption [Not Recovered/Not Resolved]
